FAERS Safety Report 15832673 (Version 1)
Quarter: 2019Q1

REPORT INFORMATION
  Report Type: Spontaneous
  Country: DE (occurrence: DE)
  Receive Date: 20190116
  Receipt Date: 20190116
  Transmission Date: 20190417
  Serious: Yes (Other)
  Sender: FDA-Public Use
  Company Number: DE-TEVA-2019-DE-996724

PATIENT
  Sex: Male

DRUGS (1)
  1. VALSARTAN ABZ 80 MG FILMTABLETTEN [Suspect]
     Active Substance: VALSARTAN
     Route: 065

REACTIONS (4)
  - Anxiety disorder [Unknown]
  - Squamous cell carcinoma [Unknown]
  - Insomnia [Unknown]
  - Mood swings [Unknown]
